FAERS Safety Report 14979573 (Version 1)
Quarter: 2018Q2

REPORT INFORMATION
  Report Type: Spontaneous
  Country: US (occurrence: US)
  Receive Date: 20180606
  Receipt Date: 20180606
  Transmission Date: 20180711
  Serious: Yes (Other)
  Sender: FDA-Public Use
  Company Number: US-JNJFOC-20180541706

PATIENT
  Sex: Female
  Weight: 63.5 kg

DRUGS (2)
  1. LOVENOX [Concomitant]
     Active Substance: ENOXAPARIN SODIUM
     Indication: HYPOTHYROIDISM
     Route: 065
  2. XARELTO [Suspect]
     Active Substance: RIVAROXABAN
     Indication: THROMBOSIS
     Dosage: UDI: 181090683756
     Route: 048
     Dates: start: 2018

REACTIONS (8)
  - Abnormal loss of weight [Not Recovered/Not Resolved]
  - Asthenia [Unknown]
  - Physical disability [Unknown]
  - Dizziness [Not Recovered/Not Resolved]
  - Feeling abnormal [Not Recovered/Not Resolved]
  - Nervous system neoplasm [Unknown]
  - Attention deficit/hyperactivity disorder [Unknown]
  - Breast cancer stage IV [Unknown]
